FAERS Safety Report 7169747-0 (Version None)
Quarter: 2010Q4

REPORT INFORMATION
  Report Type: 
  Country: None (occurrence: None)
  Receive Date: 20101217
  Receipt Date: 20091211
  Transmission Date: 20110411
  Serious: No
  Sender: FDA-Public Use
  Company Number: A0835525A

PATIENT
  Sex: Female

DRUGS (3)
  1. SORIATANE [Suspect]
     Dosage: 25MG PER DAY
     Route: 048
     Dates: start: 20091007
  2. SUNSCREEN SPF 50 [Concomitant]
  3. BONIVA [Concomitant]
     Route: 048

REACTIONS (2)
  - GENERALISED ERYTHEMA [None]
  - RASH ERYTHEMATOUS [None]
